FAERS Safety Report 7062046-7 (Version None)
Quarter: 2010Q4

REPORT INFORMATION
  Report Type: 
  Country: None (occurrence: None)
  Receive Date: 20101026
  Receipt Date: 20101022
  Transmission Date: 20110411
  Serious: Yes (Other)
  Sender: FDA-Public Use
  Company Number: A0876102A

PATIENT
  Age: 52 Year
  Sex: Female

DRUGS (3)
  1. ADVAIR DISKUS 100/50 [Suspect]
     Indication: ASTHMA
     Dosage: 1PUFF TWICE PER DAY
     Route: 055
     Dates: start: 20010101
  2. PROAIR HFA [Concomitant]
  3. PROTONIX [Concomitant]

REACTIONS (6)
  - CATARACT [None]
  - CORRECTIVE LENS USER [None]
  - DRY EYE [None]
  - IMPAIRED HEALING [None]
  - SWELLING [None]
  - VISION BLURRED [None]
